FAERS Safety Report 8913260 (Version 1)
Quarter: 2012Q4

REPORT INFORMATION
  Report Type: 
  Country: JP (occurrence: JP)
  Receive Date: 20121119
  Receipt Date: 20121119
  Transmission Date: 20130627
  Serious: Yes (Other)
  Sender: FDA-Public Use
  Company Number: JP-JNJFOC-20110813535

PATIENT
  Age: 63 Year
  Sex: Male
  Weight: 65 kg

DRUGS (12)
  1. REMICADE [Suspect]
     Indication: RHEUMATOID ARTHRITIS
     Route: 042
     Dates: start: 20110127
  2. REMICADE [Suspect]
     Indication: RHEUMATOID ARTHRITIS
     Dosage: 5th dose
     Route: 042
     Dates: start: 20110609
  3. RHEUMATREX [Suspect]
     Indication: PRODUCT USED FOR UNKNOWN INDICATION
     Route: 048
     Dates: end: 20110721
  4. PREDONINE [Suspect]
     Indication: PRODUCT USED FOR UNKNOWN INDICATION
     Route: 048
  5. ARTIST [Concomitant]
     Route: 048
     Dates: start: 20101021
  6. BAYASPIRIN [Concomitant]
     Route: 048
     Dates: start: 20101021
  7. PLAVIX [Concomitant]
     Route: 048
     Dates: start: 20101021
  8. CRESTOR [Concomitant]
     Route: 048
     Dates: start: 20101021
  9. BAKTAR [Concomitant]
     Route: 048
     Dates: start: 201106
  10. ITRIZOLE [Concomitant]
     Route: 048
     Dates: start: 20110705
  11. TAKEPRON [Concomitant]
     Route: 048
  12. NU-LOTAN [Concomitant]
     Route: 048

REACTIONS (1)
  - Pulmonary tuberculosis [Recovering/Resolving]
